FAERS Safety Report 4555128-2 (Version None)
Quarter: 2005Q1

REPORT INFORMATION
  Report Type: 
  Country: None (occurrence: None)
  Receive Date: 20050118
  Receipt Date: 20050104
  Transmission Date: 20050727
  Serious: Yes (Hospitalization)
  Sender: FDA-Public Use
  Company Number: DE-MERCK-0501DEU00068

PATIENT
  Age: 44 Year
  Sex: Male

DRUGS (1)
  1. SINGULAIR [Suspect]
     Indication: EOSINOPHILIC COLITIS
     Route: 048
     Dates: start: 20040101, end: 20050101

REACTIONS (1)
  - HEPATITIS CHOLESTATIC [None]
